FAERS Safety Report 15940042 (Version 1)
Quarter: 2019Q1

REPORT INFORMATION
  Report Type: Report from Study
  Country: US (occurrence: US)
  Receive Date: 20190208
  Receipt Date: 20190208
  Transmission Date: 20190417
  Serious: Yes (Other)
  Sender: FDA-Public Use
  Company Number: US-SAKK-2019SA023632AA

PATIENT
  Age: 61 Year
  Sex: Female

DRUGS (1)
  1. INSULIN GLARGINE [Suspect]
     Active Substance: INSULIN GLARGINE
     Indication: DIABETES MELLITUS
     Dosage: 30 U, HS
     Route: 058
     Dates: start: 2008

REACTIONS (7)
  - Unevaluable event [Unknown]
  - Tracheal obstruction [Unknown]
  - Inability to afford medication [Unknown]
  - Vocal cord disorder [Unknown]
  - Cough [Unknown]
  - Musculoskeletal stiffness [Unknown]
  - Product dose omission [Unknown]
